FAERS Safety Report 23853698 (Version 1)
Quarter: 2024Q2

REPORT INFORMATION
  Report Type: Spontaneous
  Country: US (occurrence: None)
  Receive Date: 20240513
  Receipt Date: 20240513
  Transmission Date: 20240715
  Serious: Yes (Death)
  Sender: FDA-Public Use
  Company Number: None

PATIENT
  Age: 77 Year
  Sex: Male

DRUGS (11)
  1. TEMOZOLOMIDE [Suspect]
     Active Substance: TEMOZOLOMIDE
     Indication: Brain neoplasm malignant
     Dosage: FREQ: TAKE 1 CAPSULE BY MOUTH EVERY DAY (TOTAL DAILY DOSE IS 165 MG) QN MONDAY TQ FRIDAY CONCURRENT
     Route: 048
     Dates: start: 20240319
  2. COLCHICINE [Concomitant]
     Active Substance: COLCHICINE
  3. DEXAMETHASONE [Concomitant]
     Active Substance: DEXAMETHASONE
  4. DOCUSATE [Concomitant]
     Active Substance: DOCUSATE
  5. KEPPRA [Concomitant]
     Active Substance: LEVETIRACETAM
  6. LEVETIRACETAM [Concomitant]
     Active Substance: LEVETIRACETAM
  7. LOSARTAN POTASSIUM [Concomitant]
     Active Substance: LOSARTAN POTASSIUM
  8. METOPROLOL TARTRATE [Concomitant]
     Active Substance: METOPROLOL TARTRATE
  9. MONTELUKAST SODIUM [Concomitant]
     Active Substance: MONTELUKAST SODIUM
  10. PSYLLIUM FIB [Concomitant]
  11. TEMOZOLOMIDE [Concomitant]
     Active Substance: TEMOZOLOMIDE

REACTIONS (1)
  - Death [None]

NARRATIVE: CASE EVENT DATE: 20240505
